FAERS Safety Report 5398661-6 (Version None)
Quarter: 2007Q3

REPORT INFORMATION
  Report Type: 
  Country: None (occurrence: None)
  Receive Date: 20070726
  Receipt Date: 20070103
  Transmission Date: 20080115
  Serious: No
  Sender: FDA-Public Use
  Company Number: US-AMGEN-KDL205814

PATIENT
  Sex: Male
  Weight: 95.3 kg

DRUGS (1)
  1. PROCRIT [Suspect]
     Indication: PRE-EXISTING DISEASE
     Dates: start: 20061213, end: 20061225

REACTIONS (2)
  - CHILLS [None]
  - FEELING ABNORMAL [None]
